FAERS Safety Report 7744354-7 (Version None)
Quarter: 2011Q3

REPORT INFORMATION
  Report Type: 
  Country: None (occurrence: None)
  Receive Date: 20110912
  Receipt Date: 20110901
  Transmission Date: 20111222
  Serious: Yes (Other)
  Sender: FDA-Public Use
  Company Number: US-ASTRAZENECA-2011SE52559

PATIENT
  Age: 65 Year
  Sex: Female
  Weight: 54.4 kg

DRUGS (7)
  1. SEROQUEL [Suspect]
     Route: 048
  2. LISINOPRIL [Concomitant]
     Indication: HYPERTENSION
  3. CITALOPRAM HYDROBROMIDE [Concomitant]
     Indication: DEPRESSION
  4. METOPROLOL SUCCINATE [Concomitant]
     Indication: HYPERTENSION
  5. SEROQUEL [Suspect]
     Indication: HUNTINGTON'S DISEASE
     Route: 048
     Dates: start: 20110801
  6. LEVOTHYROXINE SODIUM [Concomitant]
     Indication: THYROID DISORDER
  7. METFFORMIN HYDROCHLORIDE [Concomitant]
     Indication: DIABETES MELLITUS

REACTIONS (5)
  - INSOMNIA [None]
  - OFF LABEL USE [None]
  - UTERINE PROLAPSE [None]
  - CERVIX CARCINOMA [None]
  - MIDDLE INSOMNIA [None]
